FAERS Safety Report 4918068-2 (Version None)
Quarter: 2006Q1

REPORT INFORMATION
  Report Type: 
  Country: None (occurrence: None)
  Receive Date: 20060215
  Receipt Date: 20060206
  Transmission Date: 20060701
  Serious: Yes (Other)
  Sender: FDA-Public Use
  Company Number: PAR_0501_2006

PATIENT
  Age: 53 Year
  Sex: Male

DRUGS (1)
  1. IBUPROFEN [Suspect]
     Indication: MUSCULOSKELETAL PAIN
     Dosage: 600 MG VARIABLE PO
     Route: 048

REACTIONS (4)
  - RENAL ADENOMA [None]
  - RENAL COLIC [None]
  - RENAL FAILURE [None]
  - RENAL PAPILLARY NECROSIS [None]
